FAERS Safety Report 8556285-3 (Version None)
Quarter: 2012Q3

REPORT INFORMATION
  Report Type: 
  Country: None (occurrence: None)
  Receive Date: 20120801
  Receipt Date: 20120727
  Transmission Date: 20120928
  Serious: No
  Sender: FDA-Public Use
  Company Number: US-PFIZER INC-2012182885

PATIENT
  Sex: Female
  Weight: 46.259 kg

DRUGS (3)
  1. PREMARIN [Suspect]
     Indication: VULVOVAGINAL DRYNESS
     Dosage: UNK, 1X/DAY
     Route: 067
     Dates: start: 20120601, end: 20120601
  2. PREMARIN [Suspect]
     Dosage: UNK
     Route: 067
     Dates: start: 20120723
  3. PREMARIN [Suspect]
     Dosage: UNK, 1X/DAY
     Route: 067
     Dates: end: 20120727

REACTIONS (2)
  - HYPERSENSITIVITY [None]
  - VULVOVAGINAL SWELLING [None]
